FAERS Safety Report 17509411 (Version 1)
Quarter: 2020Q1

REPORT INFORMATION
  Report Type: Spontaneous
  Country: US (occurrence: US)
  Receive Date: 20200226
  Receipt Date: 20200226
  Transmission Date: 20200409
  Serious: Yes (Hospitalization)
  Sender: FDA-Public Use
  Company Number: None

PATIENT
  Age: 38 Year
  Sex: Female

DRUGS (1)
  1. GLATIRAMER ACETATE (12X1ML) 40MG/ML  MYLAN [Suspect]
     Active Substance: GLATIRAMER ACETATE
     Indication: MULTIPLE SCLEROSIS
     Route: 058
     Dates: start: 20180718

REACTIONS (6)
  - Injection site scar [None]
  - Wrong technique in product usage process [None]
  - Gait inability [None]
  - Incorrect dose administered by device [None]
  - Loss of consciousness [None]
  - Hypoaesthesia [None]

NARRATIVE: CASE EVENT DATE: 20200215
